FAERS Safety Report 4663586-8 (Version None)
Quarter: 2005Q2

REPORT INFORMATION
  Report Type: 
  Country: None (occurrence: None)
  Receive Date: 20050517
  Receipt Date: 20050326
  Transmission Date: 20051028
  Serious: Yes (Other)
  Sender: FDA-Public Use
  Company Number: JP-ROCHE-400422

PATIENT
  Age: 22 Year
  Sex: Female

DRUGS (3)
  1. TAMIFLU [Suspect]
     Route: 048
     Dates: start: 20050326, end: 20050326
  2. TAMIFLU [Suspect]
     Route: 048
     Dates: start: 20050325, end: 20050325
  3. CALONAL [Concomitant]
     Indication: DRUG USE FOR UNKNOWN INDICATION
     Route: 048
     Dates: start: 20050325, end: 20050326

REACTIONS (8)
  - ADHESION [None]
  - CONJUNCTIVAL HYPERAEMIA [None]
  - ERYTHEMA MULTIFORME [None]
  - OCULOMUCOCUTANEOUS SYNDROME [None]
  - RED BLOOD CELL COUNT DECREASED [None]
  - SWELLING FACE [None]
  - URINE BILIRUBIN INCREASED [None]
  - WHITE BLOOD CELL COUNT DECREASED [None]
